FAERS Safety Report 17868144 (Version 1)
Quarter: 2020Q2

REPORT INFORMATION
  Report Type: Report from Study
  Country: ES (occurrence: ES)
  Receive Date: 20200605
  Receipt Date: 20200605
  Transmission Date: 20200714
  Serious: Yes (Other)
  Sender: FDA-Public Use
  Company Number: ES-ROCHE-2611811

PATIENT

DRUGS (3)
  1. ATEZOLIZUMAB. [Suspect]
     Active Substance: ATEZOLIZUMAB
     Indication: TRANSITIONAL CELL CARCINOMA
     Route: 065
  2. PEMBROLIZUMAB. [Suspect]
     Active Substance: PEMBROLIZUMAB
     Indication: TRANSITIONAL CELL CARCINOMA
     Route: 065
  3. NIVOLUMAB [Suspect]
     Active Substance: NIVOLUMAB
     Indication: TRANSITIONAL CELL CARCINOMA
     Route: 065

REACTIONS (9)
  - Asthenia [Unknown]
  - Pruritus [Unknown]
  - Pneumonitis [Unknown]
  - Diarrhoea [Unknown]
  - Ill-defined disorder [Unknown]
  - Musculoskeletal pain [Unknown]
  - Decreased appetite [Unknown]
  - Cardiac arrest [Unknown]
  - Anaemia [Unknown]
